FAERS Safety Report 17261975 (Version 1)
Quarter: 2020Q1

REPORT INFORMATION
  Report Type: Spontaneous
  Country: TJ (occurrence: TJ)
  Receive Date: 20200113
  Receipt Date: 20200113
  Transmission Date: 20200409
  Serious: Yes (Other)
  Sender: FDA-Public Use
  Company Number: TJ-PFIZER INC-2020011732

PATIENT
  Age: 4 Year
  Sex: Male
  Weight: 14.14 kg

DRUGS (8)
  1. DELAMANID [Suspect]
     Active Substance: DELAMANID
     Dosage: 25 MG, 2X/DAY
     Dates: start: 20191202, end: 20191206
  2. LINEZOLID. [Suspect]
     Active Substance: LINEZOLID
     Indication: TUBERCULOSIS
     Dosage: 150 MG, 2X/DAY
     Dates: start: 20191030, end: 20191206
  3. CYCLOSERINE. [Suspect]
     Active Substance: CYCLOSERINE
     Indication: TUBERCULOSIS
     Dosage: 250 MG, 1X/DAY
     Dates: start: 20191030
  4. DELAMANID [Suspect]
     Active Substance: DELAMANID
     Indication: TUBERCULOSIS
     Dosage: 100 MG, 1X/DAY
     Dates: start: 20191030, end: 2019
  5. PYRIDOXINE [Concomitant]
     Active Substance: PYRIDOXINE
     Dosage: UNK
  6. BEDAQUILINE [Suspect]
     Active Substance: BEDAQUILINE
     Dosage: 100 MG, UNK (FOR 14 DAYS)
  7. CLOFAZIMINE [Suspect]
     Active Substance: CLOFAZIMINE
     Indication: TUBERCULOSIS
     Dosage: 50 MG, 1X/DAY
     Dates: start: 20191030
  8. BEDAQUILINE [Suspect]
     Active Substance: BEDAQUILINE
     Dosage: 50 MG, UNK (3 TIMES A WEEK)

REACTIONS (5)
  - Asthenia [Unknown]
  - Off label use [Unknown]
  - Insomnia [Recovered/Resolved]
  - Product use in unapproved indication [Unknown]
  - Sleep disorder [Recovered/Resolved]

NARRATIVE: CASE EVENT DATE: 20191030
